FAERS Safety Report 18929561 (Version 3)
Quarter: 2021Q1

REPORT INFORMATION
  Report Type: Report from Study
  Country: FR (occurrence: FR)
  Receive Date: 20210223
  Receipt Date: 20210309
  Transmission Date: 20210420
  Serious: Yes (Death, Hospitalization, Other)
  Sender: FDA-Public Use
  Company Number: FR-JAZZ-2021-FR-003125

PATIENT

DRUGS (7)
  1. DEFITELIO [Suspect]
     Active Substance: DEFIBROTIDE SODIUM
     Dosage: 24 MILLIGRAM/KILOGRAM/DAY
     Route: 042
     Dates: start: 20200217, end: 20200217
  2. ALBUMIN [Concomitant]
     Active Substance: ALBUMIN HUMAN
     Indication: VENOOCCLUSIVE LIVER DISEASE
  3. DEFITELIO [Suspect]
     Active Substance: DEFIBROTIDE SODIUM
     Indication: VENOOCCLUSIVE LIVER DISEASE
     Dosage: 25 MILLIGRAM/KILOGRAM/DAY
     Route: 042
     Dates: start: 20200203, end: 20200216
  4. FUROSEMIDE. [Concomitant]
     Active Substance: FUROSEMIDE
     Indication: VENOOCCLUSIVE LIVER DISEASE
     Dosage: 240 MILLIGRAM (DAILY DOSE)
     Route: 042
     Dates: start: 20200212, end: 20200214
  5. ALDACTONE [Concomitant]
     Active Substance: SPIRONOLACTONE
     Indication: VENOOCCLUSIVE LIVER DISEASE
     Dosage: 70 MILLIGRAM
     Route: 048
     Dates: start: 20200212, end: 20200214
  6. OXYGEN. [Concomitant]
     Active Substance: OXYGEN
     Indication: PRODUCT USED FOR UNKNOWN INDICATION
     Dosage: 4 L/MIN
     Route: 045
     Dates: start: 20200212, end: 20200216
  7. ENDOXAN [CYCLOPHOSPHAMIDE] [Suspect]
     Active Substance: CYCLOPHOSPHAMIDE
     Indication: PROPHYLAXIS AGAINST GRAFT VERSUS HOST DISEASE
     Dosage: 2600 MILLIGRAM, QD (DAILY DOSE)
     Route: 042
     Dates: start: 20200120, end: 20200121

REACTIONS (4)
  - Acute respiratory distress syndrome [Recovered/Resolved]
  - Acute pulmonary oedema [Recovered/Resolved]
  - Off label use [Unknown]
  - Multiple organ dysfunction syndrome [Recovered/Resolved]

NARRATIVE: CASE EVENT DATE: 20200203
